FAERS Safety Report 9493256 (Version 2)
Quarter: 2013Q3

REPORT INFORMATION
  Report Type: Spontaneous
  Country: JP (occurrence: JP)
  Receive Date: 20130902
  Receipt Date: 20130902
  Transmission Date: 20140515
  Serious: Yes (Other)
  Sender: FDA-Public Use
  Company Number: PHHY2013JP087706

PATIENT
  Sex: Female

DRUGS (3)
  1. ZOLEDRONATE [Suspect]
     Indication: METASTASES TO BONE
     Dosage: 4 MG, ONCE EVERY 4 WEEKS
     Route: 041
  2. STRONTIUM (89 SR) CHLORIDE [Suspect]
     Indication: ANALGESIC THERAPY
     Dosage: 2 MEQ/KG
  3. DENOSUMAB [Concomitant]
     Dosage: 120 MG, ONCE EVERY 4 WEEKS

REACTIONS (5)
  - Osteolysis [Unknown]
  - Bone lesion [Unknown]
  - Femur fracture [Unknown]
  - Gait disturbance [Unknown]
  - Arthralgia [Unknown]
